FAERS Safety Report 9333134 (Version 1)
Quarter: 2013Q2

REPORT INFORMATION
  Report Type: Spontaneous
  Country: US (occurrence: None)
  Receive Date: 20130604
  Receipt Date: 20130604
  Transmission Date: 20140414
  Serious: Yes (Death)
  Sender: FDA-Public Use
  Company Number: 2013P1006499

PATIENT
  Age: 57 Year
  Sex: Female

DRUGS (8)
  1. CARISOPRODOL [Suspect]
  2. DIPHEMYDRAMINE [Suspect]
  3. ZOLPIDEM [Suspect]
  4. BUTALBITAL [Suspect]
  5. TRAMADOL [Suspect]
  6. TEMAZEPAM [Suspect]
  7. HYDROCODONE [Suspect]
  8. CITALOPRAM [Suspect]

REACTIONS (1)
  - Toxicity to various agents [None]
